FAERS Safety Report 8917204 (Version 1)
Quarter: 2012Q4

REPORT INFORMATION
  Report Type: 
  Country: US (occurrence: US)
  Receive Date: 20121120
  Receipt Date: 20121120
  Transmission Date: 20130627
  Serious: No
  Sender: FDA-Public Use
  Company Number: US-009507513-1211USA005132

PATIENT
  Age: 21 Year
  Sex: Female
  Weight: 68.27 kg

DRUGS (1)
  1. NEXPLANON [Suspect]
     Indication: CONTRACEPTION
     Dosage: UNK
     Route: 059
     Dates: start: 20120828

REACTIONS (6)
  - Unintended pregnancy [Unknown]
  - Nausea [Unknown]
  - Muscle spasms [Unknown]
  - Metrorrhagia [Unknown]
  - Malaise [Unknown]
  - Expired drug administered [Unknown]
